FAERS Safety Report 5877763-1 (Version None)
Quarter: 2008Q3

REPORT INFORMATION
  Report Type: 
  Country: None (occurrence: None)
  Receive Date: 20080911
  Receipt Date: 20080829
  Transmission Date: 20090109
  Serious: Yes (Other)
  Sender: FDA-Public Use
  Company Number: FR-ELI_LILLY_AND_COMPANY-FR200804006420

PATIENT
  Sex: Male

DRUGS (1)
  1. DULOXETINE HYDROCHLORIDE [Suspect]
     Indication: DEPRESSION
     Dosage: 120 MG, DAILY (1/D)
     Route: 048
     Dates: start: 20080110, end: 20080405

REACTIONS (5)
  - ALANINE AMINOTRANSFERASE INCREASED [None]
  - ASPARTATE AMINOTRANSFERASE INCREASED [None]
  - BLOOD BILIRUBIN INCREASED [None]
  - GAMMA-GLUTAMYLTRANSFERASE INCREASED [None]
  - LIVER FUNCTION TEST ABNORMAL [None]
